FAERS Safety Report 8100424-5 (Version None)
Quarter: 2012Q1

REPORT INFORMATION
  Report Type: 
  Country: None (occurrence: None)
  Receive Date: 20120129
  Receipt Date: 20111121
  Transmission Date: 20120608
  Serious: No
  Sender: FDA-Public Use
  Company Number: US-ABBOTT-11P-163-0870032-00

PATIENT
  Age: 46 Year
  Sex: Female

DRUGS (7)
  1. XANAX [Concomitant]
     Indication: PRODUCT USED FOR UNKNOWN INDICATION
     Dosage: 1MG DAILY,MAY TAKE 2 AT BEDTIME PRN
  2. XANAX [Concomitant]
     Indication: SLEEP DISORDER
  3. HYDROCODONE BITARTRATE [Concomitant]
     Indication: PAIN
     Dosage: 5/325MG AS NEEDED
  4. HUMIRA [Suspect]
     Dates: start: 20111026
  5. TACLONEX [Concomitant]
     Indication: PRODUCT USED FOR UNKNOWN INDICATION
     Dosage: PRE-HUMIRA
     Route: 061
  6. HUMIRA [Suspect]
     Indication: PSORIASIS
     Dates: start: 20111019, end: 20111019
  7. SYNTHROID [Concomitant]
     Indication: PRODUCT USED FOR UNKNOWN INDICATION

REACTIONS (11)
  - OEDEMA PERIPHERAL [None]
  - DRUG EFFECT DECREASED [None]
  - PAIN [None]
  - DERMATITIS [None]
  - DRUG INEFFECTIVE [None]
  - SKIN FISSURES [None]
  - DRY SKIN [None]
  - SKIN EXFOLIATION [None]
  - PSORIASIS [None]
  - SKIN BURNING SENSATION [None]
  - ERYTHEMA [None]
